FAERS Safety Report 17484974 (Version 1)
Quarter: 2020Q1

REPORT INFORMATION
  Report Type: Spontaneous
  Country: US (occurrence: US)
  Receive Date: 20200302
  Receipt Date: 20200302
  Transmission Date: 20200409
  Serious: Yes (Other)
  Sender: FDA-Public Use
  Company Number: US-AMERICAN REGENT INC-2020000552

PATIENT
  Age: 84 Year
  Sex: Male

DRUGS (2)
  1. EPINEPHRINE INJECTION, USP (0517-1071-01) [Suspect]
     Active Substance: EPINEPHRINE
     Indication: HAEMORRHAGE
  2. EPINEPHRINE INJECTION, USP (0517-1071-01) [Suspect]
     Active Substance: EPINEPHRINE
     Indication: PANCREATIC PSEUDOCYST
     Dosage: UNK

REACTIONS (4)
  - Drug ineffective for unapproved indication [Recovered/Resolved]
  - Pancreatic pseudocyst [Recovered/Resolved]
  - Haemorrhage [Recovered/Resolved]
  - Product use in unapproved indication [Unknown]
